FAERS Safety Report 12221545 (Version 1)
Quarter: 2016Q1

REPORT INFORMATION
  Report Type: Spontaneous
  Country: FR (occurrence: FR)
  Receive Date: 20160330
  Receipt Date: 20160330
  Transmission Date: 20160526
  Serious: Yes (Hospitalization)
  Sender: FDA-Public Use
  Company Number: FR-PFIZER INC-2016174508

PATIENT
  Age: 83 Year
  Sex: Male

DRUGS (9)
  1. CORTANCYL [Concomitant]
     Active Substance: PREDNISONE
     Indication: RENAL DISORDER
  2. PREVISCAN /00789001/ [Suspect]
     Active Substance: FLUINDIONE
     Indication: ATRIAL TACHYCARDIA
     Dosage: 3X/DAY (0.5-0.5-0.25)
     Route: 048
     Dates: end: 20160211
  3. CORTANCYL [Concomitant]
     Active Substance: PREDNISONE
     Indication: VASCULITIS
  4. CORTANCYL [Concomitant]
     Active Substance: PREDNISONE
     Indication: ARTHROPATHY
  5. LAROSCORBINE [Concomitant]
     Active Substance: ASCORBIC ACID
     Indication: VITAMIN C DEFICIENCY
     Dosage: 1 G, 1X/DAY
     Route: 048
     Dates: start: 20160209
  6. CORTANCYL [Concomitant]
     Active Substance: PREDNISONE
     Indication: BLOOD IMMUNOGLOBULIN A
     Dosage: 40 MG, DAILY
     Route: 048
     Dates: start: 20160211
  7. RAMIPRIL. [Concomitant]
     Active Substance: RAMIPRIL
     Dosage: 2.5 MG, 1X/DAY
     Dates: end: 20160204
  8. EUPANTOL [Suspect]
     Active Substance: PANTOPRAZOLE SODIUM
     Indication: GASTROOESOPHAGEAL REFLUX DISEASE
     Dosage: 40 MG, 1X/DAY
     Route: 048
     Dates: start: 20160204
  9. FUROSEMIDE. [Concomitant]
     Active Substance: FUROSEMIDE
     Dosage: 80 MG, 1X/DAY

REACTIONS (2)
  - International normalised ratio increased [Recovered/Resolved]
  - Eyelid haematoma [Recovering/Resolving]

NARRATIVE: CASE EVENT DATE: 20160212
